FAERS Safety Report 4850969-6 (Version None)
Quarter: 2005Q4

REPORT INFORMATION
  Report Type: 
  Country: None (occurrence: None)
  Receive Date: 20051130
  Receipt Date: 20051019
  Transmission Date: 20060501
  Serious: No
  Sender: FDA-Public Use
  Company Number: FABR-11286

PATIENT
  Age: 34 Year
  Sex: Male
  Weight: 82.5547 kg

DRUGS (1)
  1. FABRAZYME [Suspect]
     Indication: FABRY'S DISEASE

REACTIONS (3)
  - BLOOD POTASSIUM INCREASED [None]
  - HEADACHE [None]
  - RENAL IMPAIRMENT [None]
